FAERS Safety Report 4793433-5 (Version None)
Quarter: 2005Q4

REPORT INFORMATION
  Report Type: 
  Country: None (occurrence: None)
  Receive Date: 20051011
  Receipt Date: 20041115
  Transmission Date: 20060501
  Serious: Yes (Other)
  Sender: FDA-Public Use
  Company Number: US-BRISTOL-MYERS SQUIBB COMPANY-12765707

PATIENT
  Age: 63 Year
  Sex: Male
  Weight: 111 kg

DRUGS (5)
  1. GLUCOPHAGE XR [Suspect]
     Indication: DIABETES MELLITUS
     Route: 048
     Dates: start: 20041101
  2. LOTREL [Concomitant]
     Dosage: 5-20 MG = DOSE
  3. METOPROLOL [Concomitant]
  4. CLONIDINE [Concomitant]
  5. HUMULIN 70/30 [Concomitant]
     Dosage: TWICE A DAY

REACTIONS (5)
  - BLOOD GLUCOSE FLUCTUATION [None]
  - DRY MOUTH [None]
  - POLLAKIURIA [None]
  - TREMOR [None]
  - VISION BLURRED [None]
